FAERS Safety Report 7803869-3 (Version None)
Quarter: 2011Q4

REPORT INFORMATION
  Report Type: 
  Country: None (occurrence: None)
  Receive Date: 20111010
  Receipt Date: 20110930
  Transmission Date: 20120403
  Serious: Yes (Hospitalization)
  Sender: FDA-Public Use
  Company Number: FR-PFIZER INC-2008041355

PATIENT
  Age: 40 Year
  Sex: Female
  Weight: 70 kg

DRUGS (3)
  1. VARNOLINE [Concomitant]
     Dosage: 1 TABLET,DAILY
     Route: 048
     Dates: start: 20060106
  2. DESMOPRESSIN ACETATE [Concomitant]
     Indication: BLOOD ANTIDIURETIC HORMONE DECREASED
     Dosage: 0.2 MG, UNK
     Route: 048
     Dates: start: 20060106
  3. SOMATROPIN [Suspect]
     Indication: HYPOPITUITARISM
     Dosage: 0.4 MG/DAY, 7 INJECTIONS/WEEK
     Dates: start: 20060927, end: 20070515

REACTIONS (1)
  - PITUITARY TUMOUR BENIGN [None]
